FAERS Safety Report 5137814-9 (Version None)
Quarter: 2006Q4

REPORT INFORMATION
  Report Type: 
  Country: None (occurrence: None)
  Receive Date: 20061030
  Receipt Date: 20060118
  Transmission Date: 20070319
  Serious: No
  Sender: FDA-Public Use
  Company Number: US-GLAXOSMITHKLINE-A0589880A

PATIENT
  Age: 63 Year
  Sex: Female

DRUGS (23)
  1. ADVAIR HFA [Suspect]
     Indication: ASTHMA
     Dosage: 1PUFF TWICE PER DAY
     Route: 055
     Dates: start: 20051230
  2. UNKNOWN MEDICATION [Concomitant]
     Dosage: 20MG FOUR TIMES PER DAY
  3. CARDIZEM [Concomitant]
     Dosage: 40MG TWICE PER DAY
  4. CENTRUM [Concomitant]
  5. CLARITIN [Concomitant]
     Dosage: 10MG UNKNOWN
  6. MIACALCIN [Concomitant]
  7. OMEGA 3 FISH OIL [Concomitant]
     Dosage: 1000MG TWICE PER DAY
  8. NEXIUM [Concomitant]
     Dosage: 40MG PER DAY
  9. PRILOSEC [Concomitant]
     Dosage: 20MG PER DAY
  10. SANDOSTATIN [Concomitant]
     Dosage: 30MG UNKNOWN
  11. SINGULAIR [Concomitant]
     Dosage: 10MG PER DAY
  12. VIOKASE [Concomitant]
  13. VITACON FORTE [Concomitant]
  14. VITAMIN E [Concomitant]
  15. NITROGLYCERIN [Concomitant]
     Dosage: .4MG AS REQUIRED
  16. ALBUTEROL [Concomitant]
  17. MAXAIR [Concomitant]
  18. SANDOSTATIN [Concomitant]
  19. TIGAN [Concomitant]
     Dosage: 300MG AS REQUIRED
  20. MYLANTA ES [Concomitant]
  21. GAVISCON [Concomitant]
  22. DARVOCET-N 100 [Concomitant]
  23. BENADRYL [Concomitant]

REACTIONS (2)
  - BACK PAIN [None]
  - MUSCLE SPASMS [None]
